FAERS Safety Report 9278140 (Version 1)
Quarter: 2013Q2

REPORT INFORMATION
  Report Type: Spontaneous
  Country: US (occurrence: None)
  Receive Date: 20130503
  Receipt Date: 20130503
  Transmission Date: 20140414
  Serious: No
  Sender: FDA-Public Use
  Company Number: None

PATIENT
  Age: 21 Year
  Sex: Female
  Weight: 65.77 kg

DRUGS (1)
  1. DAYTIME MOISTURIZER [Suspect]
     Route: 061
     Dates: start: 20120129, end: 20120228

REACTIONS (2)
  - Acne [None]
  - Expired drug administered [None]
